FAERS Safety Report 7426855-4 (Version None)
Quarter: 2011Q2

REPORT INFORMATION
  Report Type: 
  Country: None (occurrence: None)
  Receive Date: 20110420
  Receipt Date: 20110406
  Transmission Date: 20111010
  Serious: Yes (Other)
  Sender: FDA-Public Use
  Company Number: US-PAR PHARMACEUTICAL, INC-2011SCPR002866

PATIENT

DRUGS (1)
  1. DEXAMETHASONE [Suspect]
     Indication: FACIAL PAIN
     Dosage: UNK UNK, TID
     Route: 061

REACTIONS (1)
  - CUSHING'S SYNDROME [None]
